FAERS Safety Report 25986085 (Version 1)
Quarter: 2025Q4

REPORT INFORMATION
  Report Type: Spontaneous
  Country: GB (occurrence: GB)
  Receive Date: 20251031
  Receipt Date: 20251031
  Transmission Date: 20260117
  Serious: Yes (Life-Threatening, Hospitalization, Disabling, Other)
  Sender: GLAXOSMITHKLINE
  Company Number: None

PATIENT
  Age: 47 Year
  Sex: Male
  Weight: 100 kg

DRUGS (1)
  1. ALBUTEROL [Suspect]
     Active Substance: ALBUTEROL
     Indication: Asthma
     Dosage: UNK
     Route: 065

REACTIONS (5)
  - Respiratory failure [Recovered/Resolved with Sequelae]
  - Drug monitoring procedure not performed [Unknown]
  - Asthma [Unknown]
  - Deep vein thrombosis [Unknown]
  - Intentional product misuse [Unknown]

NARRATIVE: CASE EVENT DATE: 20250925
